FAERS Safety Report 10170531 (Version 1)
Quarter: 2014Q2

REPORT INFORMATION
  Report Type: Spontaneous
  Country: MA (occurrence: MA)
  Receive Date: 20140513
  Receipt Date: 20140513
  Transmission Date: 20141212
  Serious: Yes (Death, Other)
  Sender: FDA-Public Use
  Company Number: PHHY2014MA057078

PATIENT
  Age: 17 Year
  Sex: Male

DRUGS (10)
  1. ZOLEDRONATE [Suspect]
     Indication: METASTASES TO LUNG
     Dosage: 4 MG, QW3
     Route: 042
  2. ZOLEDRONATE [Suspect]
     Indication: METASTASES TO BONE
  3. VINCRISTINE [Suspect]
     Indication: METASTASES TO LUNG
     Dosage: 2 MG, UNK
     Route: 042
  4. VINCRISTINE [Suspect]
     Indication: METASTASES TO BONE
  5. DOXORUBICIN [Suspect]
     Indication: METASTASES TO LUNG
     Dosage: 50 MG/M2, UNK
  6. DOXORUBICIN [Suspect]
     Indication: METASTASES TO BONE
  7. IFOSFAMIDE [Suspect]
     Indication: METASTASES TO LUNG
  8. IFOSFAMIDE [Suspect]
     Indication: METASTASES TO BONE
  9. GEMCITABINE [Concomitant]
     Dosage: 1000 MG/M2, QW2
  10. OXALIPLATIN [Concomitant]
     Dosage: 100 MG/M2, QW2

REACTIONS (4)
  - Death [Fatal]
  - Rhabdomyosarcoma [Unknown]
  - Metastases to pituitary gland [Unknown]
  - Malignant neoplasm progression [Unknown]
